FAERS Safety Report 19837618 (Version 2)
Quarter: 2021Q3

REPORT INFORMATION
  Report Type: Spontaneous
  Country: JP (occurrence: JP)
  Receive Date: 20210916
  Receipt Date: 20210927
  Transmission Date: 20211014
  Serious: Yes (Death)
  Sender: FDA-Public Use
  Company Number: NVSJ2021JP013748

PATIENT
  Age: 93 Year
  Sex: Female

DRUGS (4)
  1. ENTRESTO [Suspect]
     Active Substance: SACUBITRIL\VALSARTAN
     Dosage: 200 MG
     Route: 048
     Dates: start: 20210824, end: 20210904
  2. CARDENALIN [Concomitant]
     Active Substance: DOXAZOSIN MESYLATE
     Indication: PRODUCT USED FOR UNKNOWN INDICATION
     Dosage: 2 MG
     Route: 048
     Dates: end: 20210904
  3. CONIEL [Concomitant]
     Active Substance: BENIDIPINE HYDROCHLORIDE
     Indication: PRODUCT USED FOR UNKNOWN INDICATION
     Dosage: 8 MG
     Route: 048
     Dates: end: 20210904
  4. ENTRESTO [Suspect]
     Active Substance: SACUBITRIL\VALSARTAN
     Indication: CARDIAC FAILURE CHRONIC
     Dosage: 100 MG
     Route: 048
     Dates: start: 20210810, end: 20210823

REACTIONS (1)
  - Cardiac failure chronic [Fatal]
